FAERS Safety Report 6550128-5 (Version None)
Quarter: 2010Q1

REPORT INFORMATION
  Report Type: 
  Country: None (occurrence: None)
  Receive Date: 20100125
  Receipt Date: 20100120
  Transmission Date: 20100710
  Serious: Yes (Hospitalization)
  Sender: FDA-Public Use
  Company Number: US-RB-001153-10

PATIENT
  Age: 62 Year
  Sex: Female

DRUGS (4)
  1. SUBOXONE [Suspect]
     Route: 060
     Dates: end: 20080101
  2. SUBOXONE [Suspect]
     Dosage: UNIT DOSE KNOWN, DOSE AND FREQUENCY UNKNOWN
     Route: 065
     Dates: start: 20080101
  3. VICODIN [Suspect]
     Indication: PAIN
     Dosage: DOSING DETAILS UNKNOWN
     Route: 065
  4. VALIUM [Suspect]
     Indication: DRUG USE FOR UNKNOWN INDICATION
     Dosage: DOSING DETAILS UNKNOWN
     Route: 065

REACTIONS (6)
  - CHRONIC OBSTRUCTIVE PULMONARY DISEASE [None]
  - DRUG WITHDRAWAL SYNDROME [None]
  - HEADACHE [None]
  - PNEUMONIA [None]
  - TREMOR [None]
  - VOMITING [None]
